FAERS Safety Report 7108627-3 (Version None)
Quarter: 2010Q4

REPORT INFORMATION
  Report Type: 
  Country: None (occurrence: None)
  Receive Date: 20101115
  Receipt Date: 20101115
  Transmission Date: 20110411
  Serious: No
  Sender: FDA-Public Use
  Company Number: None

PATIENT
  Sex: Female
  Weight: 70 kg

DRUGS (1)
  1. EFFIENT [Suspect]
     Indication: STENT PLACEMENT
     Dosage: 10 MG 1 DAILY
     Dates: start: 20100901, end: 20101101

REACTIONS (6)
  - ALOPECIA [None]
  - CONTUSION [None]
  - FATIGUE [None]
  - HEADACHE [None]
  - NAUSEA [None]
  - THROMBOSIS [None]
